FAERS Safety Report 13204540 (Version 1)
Quarter: 2017Q1

REPORT INFORMATION
  Report Type: Spontaneous
  Country: US (occurrence: US)
  Receive Date: 20170208
  Receipt Date: 20170208
  Transmission Date: 20170428
  Serious: Yes (Other)
  Sender: FDA-Public Use
  Company Number: None

PATIENT
  Age: 91 Year
  Sex: Female
  Weight: 58 kg

DRUGS (1)
  1. SAVAYSA [Suspect]
     Active Substance: EDOXABAN TOSYLATE
     Indication: DEEP VEIN THROMBOSIS
     Route: 048
     Dates: start: 20160808

REACTIONS (10)
  - Drug level below therapeutic [None]
  - Pneumonia [None]
  - Pleural effusion [None]
  - Incontinence [None]
  - Paranoia [None]
  - Thalamic infarction [None]
  - Fall [None]
  - Treatment noncompliance [None]
  - Seizure [None]
  - Cerebral infarction [None]

NARRATIVE: CASE EVENT DATE: 20161215
